FAERS Safety Report 6566746-4 (Version None)
Quarter: 2010Q1

REPORT INFORMATION
  Report Type: 
  Country: None (occurrence: None)
  Receive Date: 20100127
  Receipt Date: 20100118
  Transmission Date: 20100710
  Serious: Yes (Hospitalization)
  Sender: FDA-Public Use
  Company Number: 2010EU000235

PATIENT
  Age: 29 Year
  Sex: Female

DRUGS (3)
  1. PROGRAF [Suspect]
     Dosage: 6 MG, BID, ORAL
     Route: 048
     Dates: start: 20080701, end: 20090701
  2. REMICADE [Concomitant]
  3. AZATHIOPRINE SODIUM [Concomitant]

REACTIONS (8)
  - BACTERIAL TOXAEMIA [None]
  - CAESAREAN SECTION [None]
  - DRUG EXPOSURE DURING PREGNANCY [None]
  - PLACENTAL INFARCTION [None]
  - PLACENTAL INSUFFICIENCY [None]
  - PLACENTAL NECROSIS [None]
  - PRE-ECLAMPSIA [None]
  - PREGNANCY [None]
